FAERS Safety Report 23672836 (Version 1)
Quarter: 2024Q1

REPORT INFORMATION
  Report Type: Spontaneous
  Country: US (occurrence: US)
  Receive Date: 20240326
  Receipt Date: 20240326
  Transmission Date: 20240410
  Serious: No
  Sender: FDA-Public Use
  Company Number: US-TEVA-VS-3154399

PATIENT
  Age: 43 Year
  Sex: Female

DRUGS (1)
  1. NORTRIPTYLINE HYDROCHLORIDE [Suspect]
     Active Substance: NORTRIPTYLINE HYDROCHLORIDE
     Indication: Migraine
     Route: 065
     Dates: start: 2024

REACTIONS (6)
  - Abdominal distension [Unknown]
  - Headache [Not Recovered/Not Resolved]
  - Migraine [Unknown]
  - Product dose omission issue [Unknown]
  - Diarrhoea [Unknown]
  - Migraine [Unknown]

NARRATIVE: CASE EVENT DATE: 20240201
